FAERS Safety Report 6287144-7 (Version None)
Quarter: 2009Q3

REPORT INFORMATION
  Report Type: 
  Country: None (occurrence: None)
  Receive Date: 20090728
  Receipt Date: 20090727
  Transmission Date: 20100115
  Serious: Yes (Hospitalization, Other)
  Sender: FDA-Public Use
  Company Number: US-ROXANE LABORATORIES, INC.-2009-RO-00754RO

PATIENT
  Age: 8 Month
  Sex: Female
  Weight: 7 kg

DRUGS (7)
  1. DEXAMETHASONE [Suspect]
  2. MERCAPTOPURINE [Suspect]
  3. METHOTREXATE [Suspect]
  4. LESTAURTINIB [Suspect]
     Indication: ACUTE LYMPHOCYTIC LEUKAEMIA
     Route: 048
     Dates: start: 20080606
  5. VINCRISTINE SULFATE [Suspect]
  6. CYTARABINE [Concomitant]
  7. HYDROCORTISONE [Concomitant]

REACTIONS (4)
  - APNOEA [None]
  - CYANOSIS [None]
  - GASTROENTERITIS [None]
  - RHINOVIRUS INFECTION [None]
